FAERS Safety Report 6760069-6 (Version None)
Quarter: 2010Q2

REPORT INFORMATION
  Report Type: 
  Country: None (occurrence: None)
  Receive Date: 20100608
  Receipt Date: 20100602
  Transmission Date: 20101027
  Serious: Yes (Hospitalization)
  Sender: FDA-Public Use
  Company Number: FR-B.I. PHARMACEUTICALS,INC./RIDGEFIELD-2010-FF-00463FF

PATIENT
  Sex: Female

DRUGS (16)
  1. SPIRIVA [Suspect]
     Dosage: 18 MCG
     Route: 055
     Dates: end: 20100412
  2. SPIRIVA [Suspect]
     Dosage: 18 MCG
     Route: 055
     Dates: start: 20100415, end: 20100418
  3. OXYBUTYNIN [Suspect]
     Route: 048
     Dates: end: 20100412
  4. OXYBUTYNIN [Suspect]
     Route: 048
     Dates: start: 20100414, end: 20100415
  5. BIPRETERAX [Concomitant]
  6. CLONIDINE HCL [Concomitant]
  7. CITALOPRAM [Concomitant]
  8. LERCAN [Concomitant]
  9. SINGULAIR [Concomitant]
  10. ZOLPIDEM [Concomitant]
  11. KALEORID [Concomitant]
  12. AERIUS [Concomitant]
  13. FENOFIBRATE [Concomitant]
  14. KARDEGIC [Concomitant]
  15. RIVOTRIL [Concomitant]
     Dates: end: 20100415
  16. GRANIONS DE LITHIUM [Concomitant]
     Dosage: 1MG/2ML
     Route: 048

REACTIONS (4)
  - CONFUSIONAL STATE [None]
  - FALL [None]
  - HEADACHE [None]
  - NAUSEA [None]
